FAERS Safety Report 5270906-2 (Version None)
Quarter: 2007Q1

REPORT INFORMATION
  Report Type: 
  Country: None (occurrence: None)
  Receive Date: 20070309
  Receipt Date: 20070227
  Transmission Date: 20070707
  Serious: Yes (Other)
  Sender: FDA-Public Use
  Company Number: THYM-11337

PATIENT
  Age: 39 Year
  Sex: Female

DRUGS (4)
  1. THYMOGLOBULIN [Suspect]
     Indication: KIDNEY TRANSPLANT REJECTION
     Dosage: 1.4 MG/KG IV
     Route: 042
     Dates: start: 20070209
  2. PROGRAF [Concomitant]
  3. CELLCEPT [Concomitant]
  4. NORVASC [Concomitant]

REACTIONS (1)
  - SERUM SICKNESS [None]
